FAERS Safety Report 17960201 (Version 1)
Quarter: 2020Q2

REPORT INFORMATION
  Report Type: Spontaneous
  Country: US (occurrence: US)
  Receive Date: 20200629
  Receipt Date: 20200629
  Transmission Date: 20200714
  Serious: Yes (Other)
  Sender: FDA-Public Use
  Company Number: US-ANIPHARMA-2020-US-011593

PATIENT
  Age: 65 Year
  Sex: Male

DRUGS (2)
  1. VANCOMYCIN HYDROCHLORIDE (NON-SPECIFIC) [Suspect]
     Active Substance: VANCOMYCIN HYDROCHLORIDE
     Indication: PRODUCT USED FOR UNKNOWN INDICATION
  2. CEFEPIME [Concomitant]
     Active Substance: CEFEPIME HYDROCHLORIDE
     Indication: DEVICE RELATED INFECTION

REACTIONS (1)
  - Autoimmune haemolytic anaemia [Unknown]
